FAERS Safety Report 7051606-5 (Version None)
Quarter: 2010Q4

REPORT INFORMATION
  Report Type: 
  Country: None (occurrence: None)
  Receive Date: 20101019
  Receipt Date: 20101004
  Transmission Date: 20110411
  Serious: Yes (Other)
  Sender: FDA-Public Use
  Company Number: EG-ROCHE-731839

PATIENT

DRUGS (2)
  1. PEG-INTRON [Suspect]
     Route: 058
  2. RIBAVIRIN [Suspect]
     Dosage: MAXIMUM DOSE: 1200 MG.
     Route: 065

REACTIONS (2)
  - DEAFNESS NEUROSENSORY [None]
  - SUDDEN HEARING LOSS [None]
